FAERS Safety Report 8738725 (Version 2)
Quarter: 2012Q4

REPORT INFORMATION
  Report Type: 
  Country: US (occurrence: US)
  Receive Date: 20120823
  Receipt Date: 20120921
  Transmission Date: 20130627
  Serious: Yes (Other)
  Sender: FDA-Public Use
  Company Number: US-PFIZER INC-2012202996

PATIENT
  Age: 57 Year
  Sex: Female
  Weight: 76.6 kg

DRUGS (10)
  1. PREMARIN [Suspect]
     Indication: HORMONE REPLACEMENT THERAPY
     Dosage: 2.5 mg, 1x/day
     Route: 048
     Dates: start: 198001
  2. PREMARIN [Suspect]
     Indication: MENOPAUSAL SYMPTOMS
     Dosage: 1.25 mg, 1x/day
     Route: 048
  3. PREMARIN [Suspect]
     Indication: HOT FLUSH
  4. PREMARIN [Suspect]
     Indication: MOOD SWINGS
  5. PREMARIN [Suspect]
     Indication: MENOPAUSE
  6. PERPHENAZINE/AMITRIPTYLINE [Concomitant]
     Indication: MOOD ALTERED
     Dosage: 4/25 mg, as needed
  7. PERPHENAZINE/AMITRIPTYLINE [Concomitant]
     Indication: STRESS
  8. XANAX [Concomitant]
     Indication: INSOMNIA
     Dosage: UNK
     Dates: start: 2005
  9. PROTONIX [Concomitant]
     Indication: GASTRIC DISORDER
     Dosage: 80 mg (40 mg, two at a time), once daily
     Route: 048
     Dates: start: 2005
  10. LORTAB [Concomitant]
     Indication: PAIN
     Dosage: 10/500 mg, UNK
     Dates: start: 2005

REACTIONS (2)
  - Chronic obstructive pulmonary disease [Unknown]
  - Fibromyalgia [Unknown]
